FAERS Safety Report 9171436 (Version 1)
Quarter: 2013Q1

REPORT INFORMATION
  Report Type: Spontaneous
  Country: CA (occurrence: None)
  Receive Date: 20130313
  Receipt Date: 20130313
  Transmission Date: 20140127
  Serious: No
  Sender: FDA-Public Use
  Company Number: AECAN201200386

PATIENT
  Age: 48 Year
  Sex: Female

DRUGS (12)
  1. PROLASTIN-C [Suspect]
     Indication: ALPHA-1 ANTI-TRYPSIN DEFICIENCY
     Route: 042
     Dates: start: 20120620
  2. PARACETAMOL [Concomitant]
  3. OXYCONTIN [Concomitant]
  4. XENICAL [Concomitant]
  5. CHAMPIX [Concomitant]
  6. SPIRIVA [Concomitant]
  7. PROGESTERON [Concomitant]
  8. ESTRACE [Concomitant]
  9. SYMBICORT [Concomitant]
  10. MULTIVITAMIN [Concomitant]
  11. FLAXA SEEDS [Concomitant]
  12. SALBUTAMOL [Concomitant]

REACTIONS (5)
  - Arthralgia [None]
  - Neck pain [None]
  - Back pain [None]
  - Musculoskeletal stiffness [None]
  - Discomfort [None]
